FAERS Safety Report 10236105 (Version 1)
Quarter: 2014Q1

REPORT INFORMATION
  Report Type: Spontaneous
  Country: US (occurrence: None)
  Receive Date: 20140306
  Receipt Date: 20140306
  Transmission Date: 20141002
  Serious: Yes (Death, Hospitalization, Other)
  Sender: FDA-Public Use
  Company Number: 163-21880-13103325

PATIENT
  Age: 82 Year
  Sex: Male
  Weight: 66.23 kg

DRUGS (8)
  1. REVLIMID (LENALIDOMIDE) (10 MILLIGRAM, CAPSULES) [Suspect]
     Indication: MYELODYSPLASTIC SYNDROME
     Dosage: 10 MG, 1 IN 1 D, PO
     Route: 048
     Dates: start: 20130924
  2. EXJADE ( DEFERASIROX) (TABLETS) [Concomitant]
  3. TERAZOSIN ( TERAZOSIN) (CAPSULES) [Concomitant]
  4. ATENOLOL ( ATENOLOL) (TABLETS) [Concomitant]
  5. GLIPIZIDE ( GLIPIZIDE) (TABLETS) [Concomitant]
  6. TEMAZEPAM ( TEMAZEPAM) (CAPSULES) [Concomitant]
  7. FOLIC ACID ( FOLIC ACID) (UNKNOWN) [Concomitant]
  8. NEUPOGEN ( FILGRASTIM) (UNKNOWN) [Concomitant]

REACTIONS (3)
  - Cardiac failure congestive [None]
  - Local swelling [None]
  - Dyspnoea [None]
